FAERS Safety Report 20426436 (Version 1)
Quarter: 2022Q1

REPORT INFORMATION
  Report Type: Report from Study
  Country: US (occurrence: US)
  Receive Date: 20220204
  Receipt Date: 20220204
  Transmission Date: 20220423
  Serious: No
  Sender: FDA-Public Use
  Company Number: US-EXELIXIS-CABO-21042162

PATIENT
  Sex: Female
  Weight: 103 kg

DRUGS (31)
  1. CABOMETYX [Suspect]
     Active Substance: CABOZANTINIB S-MALATE
     Indication: Renal cancer
     Dosage: 60 MG, QD
     Route: 048
     Dates: start: 20210618, end: 20210621
  2. CABOMETYX [Suspect]
     Active Substance: CABOZANTINIB S-MALATE
     Dosage: 40 MG, QD
     Route: 048
     Dates: start: 20210628, end: 20210731
  3. CABOMETYX [Suspect]
     Active Substance: CABOZANTINIB S-MALATE
     Dosage: 40 MG, QD
     Route: 048
  4. CABOMETYX [Suspect]
     Active Substance: CABOZANTINIB S-MALATE
     Dosage: 20 MG, QD
     Route: 048
     Dates: start: 20210814
  5. CABOMETYX [Suspect]
     Active Substance: CABOZANTINIB S-MALATE
     Dosage: 20 MG, QD
     Route: 048
  6. AMOXICILLIN\CLAVULANATE POTASSIUM [Concomitant]
     Active Substance: AMOXICILLIN\CLAVULANATE POTASSIUM
     Dosage: UNK
  7. DIAZEPAM [Concomitant]
     Active Substance: DIAZEPAM
     Dosage: UNK
  8. DICYCLOMINE [Concomitant]
     Active Substance: DICYCLOMINE HYDROCHLORIDE
     Dosage: UNK
  9. Fentanyl dis [Concomitant]
     Dosage: UNK
  10. GABAPENTIN [Concomitant]
     Active Substance: GABAPENTIN
     Dosage: UNK
  11. HYDROMORPHONE [Concomitant]
     Active Substance: HYDROMORPHONE
     Dosage: UNK
  12. METRONIDAZOLE [Concomitant]
     Active Substance: METRONIDAZOLE
     Dosage: UNK
  13. MORPHINE SULFATE [Concomitant]
     Active Substance: MORPHINE SULFATE
     Dosage: UNK
  14. OLANZAPINE [Concomitant]
     Active Substance: OLANZAPINE
     Dosage: UNK
  15. ONDANSETRON [Concomitant]
     Active Substance: ONDANSETRON
     Dosage: UNK
  16. PROCHLORPERAZINE MALEATE [Concomitant]
     Active Substance: PROCHLORPERAZINE MALEATE
     Dosage: UNK
  17. SANCUSO [Concomitant]
     Active Substance: GRANISETRON
     Dosage: UNK
  18. XARELTO [Concomitant]
     Active Substance: RIVAROXABAN
     Dosage: UNK
  19. METOPROLOL SUCCINATE [Concomitant]
     Active Substance: METOPROLOL SUCCINATE
     Dosage: UNK
  20. AMLODIPINE [Concomitant]
     Active Substance: AMLODIPINE BESYLATE
     Dosage: UNK
  21. DEXAMETHASONE [Concomitant]
     Active Substance: DEXAMETHASONE
  22. LORAZEPAM [Concomitant]
     Active Substance: LORAZEPAM
  23. METOCLOPRAMIDE [Concomitant]
     Active Substance: METOCLOPRAMIDE
  24. OXYCODONE [Concomitant]
     Active Substance: OXYCODONE
  25. AZITHROMYCIN [Concomitant]
     Active Substance: AZITHROMYCIN
  26. BENZONATATE [Concomitant]
     Active Substance: BENZONATATE
  27. METHYLPREDNISOLONE [Concomitant]
     Active Substance: METHYLPREDNISOLONE
  28. METRONIDAZOLE [Concomitant]
     Active Substance: METRONIDAZOLE
  29. MONTELUKAST [Concomitant]
     Active Substance: MONTELUKAST SODIUM
  30. PROMETHAZINE [Concomitant]
     Active Substance: PROMETHAZINE HYDROCHLORIDE
  31. AMLODIPINE\HYDROCHLOROTHIAZIDE\VALSARTAN [Concomitant]
     Active Substance: AMLODIPINE\HYDROCHLOROTHIAZIDE\VALSARTAN

REACTIONS (9)
  - Blister [Recovering/Resolving]
  - Dry mouth [Recovering/Resolving]
  - Pain [Unknown]
  - Stomatitis [Recovering/Resolving]
  - Weight decreased [Unknown]
  - Blood pressure increased [Recovered/Resolved]
  - Decreased appetite [Unknown]
  - Rash [Unknown]
  - Product dose omission issue [Unknown]
